FAERS Safety Report 7819970-4 (Version None)
Quarter: 2011Q4

REPORT INFORMATION
  Report Type: 
  Country: None (occurrence: None)
  Receive Date: 20111018
  Receipt Date: 20101110
  Transmission Date: 20120403
  Serious: No
  Sender: FDA-Public Use
  Company Number: US-ASTRAZENECA-2010SE53479

PATIENT
  Age: 45 Year
  Sex: Female
  Weight: 106.6 kg

DRUGS (12)
  1. SYMBICORT [Suspect]
     Dosage: 160/4.5 TWO PUFFS BID
     Route: 055
  2. ENALAPRIL MALEATE [Concomitant]
  3. LOVASTATIN [Concomitant]
  4. LANTUS [Concomitant]
  5. SEROQUEL [Concomitant]
  6. BENTYL [Concomitant]
  7. BUSPAR [Concomitant]
  8. NASONEX [Concomitant]
  9. ATIVAN [Concomitant]
     Dosage: PRN
  10. ALLEGRA [Concomitant]
  11. LAMICTAL [Concomitant]
  12. METFORMIN HYDROCHLORIDE [Concomitant]

REACTIONS (3)
  - BLOOD PRESSURE INCREASED [None]
  - INAPPROPRIATE SCHEDULE OF DRUG ADMINISTRATION [None]
  - INTRAOCULAR PRESSURE INCREASED [None]
